FAERS Safety Report 4837817-5 (Version None)
Quarter: 2005Q4

REPORT INFORMATION
  Report Type: 
  Country: None (occurrence: None)
  Receive Date: 20051128
  Receipt Date: 20051116
  Transmission Date: 20060501
  Serious: Yes (Hospitalization)
  Sender: FDA-Public Use
  Company Number: US-MERCK-0511USA03195

PATIENT
  Age: 57 Year
  Sex: Male
  Weight: 86 kg

DRUGS (11)
  1. VIOXX [Suspect]
     Indication: ARTHRITIS
     Route: 048
     Dates: start: 20000401, end: 20040701
  2. LORTAB [Concomitant]
     Route: 065
  3. HYDRALAZINE [Concomitant]
     Route: 065
  4. ASPIRIN [Concomitant]
     Route: 065
  5. TALWIN NX [Concomitant]
     Route: 065
  6. ZANTAC [Concomitant]
     Route: 065
  7. PAXIL [Concomitant]
     Route: 065
  8. NEURONTIN [Concomitant]
     Route: 065
  9. PLAVIX [Concomitant]
     Route: 065
  10. CYTOTEC [Concomitant]
     Route: 065
  11. [THERAPY UNSPECIFIED] [Concomitant]
     Route: 065

REACTIONS (8)
  - ANXIETY [None]
  - CHEST PAIN [None]
  - CORONARY ARTERY DISEASE [None]
  - COUGH [None]
  - HEART VALVE INSUFFICIENCY [None]
  - MYOCARDIAL INFARCTION [None]
  - VENTRICULAR HYPERTROPHY [None]
  - WHEEZING [None]
